FAERS Safety Report 7632434-6 (Version None)
Quarter: 2011Q3

REPORT INFORMATION
  Report Type: 
  Country: None (occurrence: None)
  Receive Date: 20110725
  Receipt Date: 20100908
  Transmission Date: 20111222
  Serious: No
  Sender: FDA-Public Use
  Company Number: US-BRISTOL-MYERS SQUIBB COMPANY-15275902

PATIENT
  Age: 82 Year
  Sex: Female

DRUGS (3)
  1. COUMADIN [Suspect]
     Dosage: DOSAGE:STARTED 3MONTHS AGO, CONTINUED AT 2 MG DAILY
  2. VITAMIN TAB [Concomitant]
  3. ZEBETA [Concomitant]

REACTIONS (4)
  - ARTHRALGIA [None]
  - WEIGHT DECREASED [None]
  - CONTUSION [None]
  - VOMITING [None]
